FAERS Safety Report 10186330 (Version 1)
Quarter: 2014Q2

REPORT INFORMATION
  Report Type: Spontaneous
  Country: US (occurrence: US)
  Receive Date: 20140521
  Receipt Date: 20140521
  Transmission Date: 20141212
  Serious: No
  Sender: FDA-Public Use
  Company Number: US-ASTRAZENECA-2014SE16519

PATIENT
  Age: 77 Year
  Sex: Female
  Weight: 89.4 kg

DRUGS (7)
  1. PULMICORT FLEXHALER [Suspect]
     Indication: COUGH
     Dosage: 90MCG 1 PUFF BID
     Route: 055
     Dates: start: 2014
  2. NEXIUM [Suspect]
     Indication: GASTROOESOPHAGEAL REFLUX DISEASE
     Route: 048
     Dates: start: 2012
  3. LYRICA [Suspect]
     Indication: EXPOSURE TO TOXIC AGENT
     Dosage: UNKNOWN UNK
     Dates: start: 2013
  4. PESTICIDES (UNSPECIFIED) [Suspect]
     Dosage: NA NA
     Route: 055
     Dates: start: 2013
  5. AMLODIPINE [Concomitant]
     Indication: BLOOD PRESSURE ABNORMAL
  6. TESSLON PEARLS [Concomitant]
     Indication: COUGH
     Dosage: UNKNOWN UNK
  7. PREDNISONE [Concomitant]
     Indication: EXPOSURE TO TOXIC AGENT

REACTIONS (15)
  - Epistaxis [Unknown]
  - Peripheral swelling [Recovering/Resolving]
  - Speech disorder [Unknown]
  - Abdominal distension [Unknown]
  - Weight increased [Unknown]
  - Adverse event [Unknown]
  - Cough [Unknown]
  - Platelet count decreased [Unknown]
  - Hepatitis [Unknown]
  - Somnolence [Unknown]
  - Nausea [Unknown]
  - Malaise [Unknown]
  - Exposure via inhalation [Unknown]
  - Off label use [Unknown]
  - Off label use [Unknown]
